FAERS Safety Report 14366241 (Version 2)
Quarter: 2018Q1

REPORT INFORMATION
  Report Type: Spontaneous
  Country: US (occurrence: US)
  Receive Date: 20180109
  Receipt Date: 20180215
  Transmission Date: 20180509
  Serious: Yes (Other)
  Sender: FDA-Public Use
  Company Number: US-AMGEN-USASP2018000336

PATIENT
  Age: 42 Year
  Sex: Female

DRUGS (1)
  1. ENBREL [Suspect]
     Active Substance: ETANERCEPT
     Indication: RHEUMATOID ARTHRITIS
     Dosage: 50 MG, QWK
     Route: 065

REACTIONS (13)
  - Insomnia [Unknown]
  - Dry eye [Unknown]
  - Muscle spasms [Unknown]
  - Feeling abnormal [Unknown]
  - Dehydration [Unknown]
  - Erythema [Unknown]
  - Abdominal pain [Unknown]
  - Arthropod bite [Unknown]
  - Menstrual disorder [Unknown]
  - Memory impairment [Unknown]
  - Respiratory tract infection [Unknown]
  - Vision blurred [Unknown]
  - Burning sensation [Unknown]

NARRATIVE: CASE EVENT DATE: 2017
